FAERS Safety Report 5265480 (Version 2)
Quarter: 2020Q3

REPORT INFORMATION
  Report Type: Report from Study
  Country: US (occurrence: US)
  Receive Date: 19950710
  Receipt Date: 20051123
  Transmission Date: 20201105
  Serious: Yes (Other)
  Sender: FDA-Public Use
  Company Number: 950331-107020248

PATIENT
  Age: 73 Year
  Sex: Male

DRUGS (2)
  1. LEUSTATIN [Suspect]
     Active Substance: CLADRIBINE
     Route: 041
     Dates: start: 19920708, end: 19930629
  2. LEUSTATIN [Suspect]
     Active Substance: CLADRIBINE
     Route: 041
     Dates: start: 19920708, end: 19930629

REACTIONS (2)
  - Pancytopenia [Unknown]
  - Myelodysplastic syndrome [Not Recovered/Not Resolved]

NARRATIVE: CASE EVENT DATE: 19930301
